FAERS Safety Report 4606536-2 (Version None)
Quarter: 2005Q2

REPORT INFORMATION
  Report Type: 
  Country: None (occurrence: None)
  Receive Date: 20050223
  Receipt Date: 20040914
  Transmission Date: 20051028
  Serious: Yes (Other)
  Sender: FDA-Public Use
  Company Number: WAES 0409USA01399

PATIENT
  Sex: 0

DRUGS (2)
  1. ZOCOR [Suspect]
     Indication: BLOOD CHOLESTEROL INCREASED
     Dosage: 80 MG/UNK/PO
     Route: 048
  2. ANTIMICROBIAL (UNSPECIFIED) [Concomitant]

REACTIONS (3)
  - HYPERCHOLESTEROLAEMIA [None]
  - RENAL FAILURE [None]
  - RHABDOMYOLYSIS [None]
